FAERS Safety Report 5221410-9 (Version None)
Quarter: 2007Q1

REPORT INFORMATION
  Report Type: 
  Country: None (occurrence: None)
  Receive Date: 20070126
  Receipt Date: 20070119
  Transmission Date: 20070707
  Serious: Yes (Other)
  Sender: FDA-Public Use
  Company Number: CH-SHR-CH-2007-002416

PATIENT
  Age: 53 Year
  Sex: Male

DRUGS (1)
  1. ULTRAVIST 300 [Suspect]
     Indication: COMPUTERISED TOMOGRAM
     Dosage: 40 ML, 1 DOSE
     Route: 042
     Dates: start: 20000101, end: 20000101

REACTIONS (4)
  - COMPARTMENT SYNDROME [None]
  - DRUG ADMINISTRATION ERROR [None]
  - INCORRECT DRUG ADMINISTRATION RATE [None]
  - INFUSION SITE EXTRAVASATION [None]
